FAERS Safety Report 23073130 (Version 2)
Quarter: 2023Q4

REPORT INFORMATION
  Report Type: Spontaneous
  Country: DE (occurrence: DE)
  Receive Date: 20231017
  Receipt Date: 20231213
  Transmission Date: 20240110
  Serious: Yes (Other)
  Sender: FDA-Public Use
  Company Number: DE-JNJFOC-20231025972

PATIENT
  Age: 83 Year
  Sex: Male

DRUGS (1)
  1. DARATUMUMAB [Suspect]
     Active Substance: DARATUMUMAB
     Indication: Plasma cell myeloma
     Dosage: 5TH LINE 2 DAYS DARATUMUMAB THERAPY D1 AND D2 (SPLIT DOSE)
     Route: 042

REACTIONS (2)
  - Cardiac failure [Unknown]
  - Left ventricular dysfunction [Unknown]
